FAERS Safety Report 7669378-X (Version None)
Quarter: 2011Q3

REPORT INFORMATION
  Report Type: 
  Country: None (occurrence: None)
  Receive Date: 20110808
  Receipt Date: 20110727
  Transmission Date: 20111222
  Serious: Yes (Hospitalization)
  Sender: FDA-Public Use
  Company Number: US-ROCHE-793038

PATIENT
  Age: 39 Year
  Sex: Female
  Weight: 86 kg

DRUGS (12)
  1. BEVACIZUMAB [Suspect]
     Indication: BREAST CANCER
     Dosage: OVER 30-90 MIN ON DAY 1 OF WEEKS 1, 3, 5, 7, 9, 11, 13, 15 AND 17 (CYCLE: 19 WEEKS)
     Route: 065
     Dates: start: 20110317
  2. PACLITAXEL [Suspect]
     Indication: BREAST CANCER
     Dosage: OVER 1 HOUR ON DAY 1 OF WEEKS 1-12 (CYCLE: 19 WEEKS)
     Route: 042
     Dates: start: 20110317
  3. DIPHENHYDRAMINE HYDROCHLORIDE [Suspect]
     Route: 065
  4. ATIVAN [Suspect]
     Route: 065
  5. DOXORUBICIN HCL [Suspect]
     Indication: BREAST CANCER
     Dosage: OVER 5-10 MINS ON DAY 1 OF WEEKS 13, 15, 17 AND 19. CYCLE: 19 WEEKS.TOTAL DOSE: 234 MG
     Route: 042
     Dates: start: 20110317
  6. DILAUDID [Suspect]
     Route: 065
  7. OMEPRAZOLE [Suspect]
     Route: 065
  8. CYCLOPHOSPHAMIDE [Suspect]
     Indication: BREAST CANCER
     Dosage: OVER 5-30 MIN ON DAY 1 OF WEEKS 13, 15, 17 AND 19. CYCLE: 19 WEEKS.TOTAL DOSE:2334 MG
     Route: 042
     Dates: start: 20110317
  9. COMPAZINE [Suspect]
     Route: 065
  10. NYSTATIN [Suspect]
     Route: 065
  11. CARBOPLATIN [Suspect]
     Indication: BREAST CANCER
     Dosage: AUC 6 OVER 30 MIN ON DAY 1 OF WEEKS 1, 4, 7 AND 10 .CYCLE: 19 WEEKS, TOTAL DOSE:3600 MG
     Route: 042
     Dates: start: 20110317
  12. COLACE [Suspect]
     Route: 065

REACTIONS (5)
  - OESOPHAGITIS [None]
  - STOMATITIS [None]
  - ANAEMIA [None]
  - HYPOMAGNESAEMIA [None]
  - FEBRILE NEUTROPENIA [None]
